FAERS Safety Report 5001696-6 (Version None)
Quarter: 2006Q2

REPORT INFORMATION
  Report Type: 
  Country: None (occurrence: None)
  Receive Date: 20060515
  Receipt Date: 20060405
  Transmission Date: 20061013
  Serious: Yes (Other)
  Sender: FDA-Public Use
  Company Number: 2006GB00766

PATIENT
  Sex: Male

DRUGS (1)
  1. SEROQUEL [Suspect]
     Dosage: MOTHER STARTED SEROQUEL IN OCT-2004
     Route: 064

REACTIONS (7)
  - BRADYCARDIA NEONATAL [None]
  - CYANOSIS NEONATAL [None]
  - DRUG EXPOSURE DURING PREGNANCY [None]
  - FOETAL GROWTH RETARDATION [None]
  - NASAL FLARING [None]
  - NEONATAL DISORDER [None]
  - NEONATAL TACHYPNOEA [None]
